FAERS Safety Report 8516080-8 (Version None)
Quarter: 2012Q3

REPORT INFORMATION
  Report Type: 
  Country: None (occurrence: None)
  Receive Date: 20120717
  Receipt Date: 20120712
  Transmission Date: 20120928
  Serious: Yes (Hospitalization, Other)
  Sender: FDA-Public Use
  Company Number: DE-ABBOTT-12P-062-0934416-00

PATIENT
  Sex: Female

DRUGS (1)
  1. HUMIRA [Suspect]
     Indication: CROHN'S DISEASE
     Route: 058
     Dates: start: 20120125

REACTIONS (6)
  - BLOOD TEST ABNORMAL [None]
  - THROMBOSIS [None]
  - APHAGIA [None]
  - OEDEMA PERIPHERAL [None]
  - CROHN'S DISEASE [None]
  - INTESTINAL STENOSIS [None]
